FAERS Safety Report 24934805 (Version 1)
Quarter: 2025Q1

REPORT INFORMATION
  Report Type: Report from Study
  Country: US (occurrence: US)
  Receive Date: 20250206
  Receipt Date: 20250206
  Transmission Date: 20250408
  Serious: Yes (Hospitalization)
  Sender: ABBVIE
  Company Number: US-ABBVIE-6066600

PATIENT
  Age: 76 Year
  Sex: Female
  Weight: 92.986 kg

DRUGS (20)
  1. RESTASIS [Suspect]
     Active Substance: CYCLOSPORINE
     Indication: Sjogren^s syndrome
     Dosage: FORM STRENGTH: 1 DROP(S)
     Route: 047
     Dates: start: 202406
  2. RESTASIS [Suspect]
     Active Substance: CYCLOSPORINE
     Indication: Product used for unknown indication
     Dosage: FORM STRENGTH: 1 DROP(S)
     Route: 047
     Dates: start: 1985, end: 202405
  3. RESTASIS [Suspect]
     Active Substance: CYCLOSPORINE
     Indication: Graves^ disease
  4. RESTASIS [Suspect]
     Active Substance: CYCLOSPORINE
     Indication: Dry eye
  5. Raw Vitamin B complex [Concomitant]
     Indication: Vitamin supplementation
  6. DIMETHYL SULFONE [Concomitant]
     Active Substance: DIMETHYL SULFONE
     Indication: Supplementation therapy
  7. LEVOXYL [Concomitant]
     Active Substance: LEVOTHYROXINE SODIUM
     Indication: Hypothyroidism
  8. SENNA [Concomitant]
     Active Substance: SENNOSIDES
     Indication: Laxative supportive care
  9. MAGNESIUM [Concomitant]
     Active Substance: MAGNESIUM
     Indication: Mineral supplementation
  10. GARLIC [Concomitant]
     Active Substance: GARLIC
     Indication: Blood pressure abnormal
  11. ACETAMINOPHEN AND CODEINE [Concomitant]
     Active Substance: ACETAMINOPHEN\CODEINE PHOSPHATE
     Indication: Pain
  12. CLONAZEPAM [Concomitant]
     Active Substance: CLONAZEPAM
     Indication: Fibromyalgia
  13. CALCIUM [Concomitant]
     Active Substance: CALCIUM
     Indication: Mineral supplementation
  14. VITAMIN C [Concomitant]
     Active Substance: ASCORBIC ACID
     Indication: Vitamin supplementation
  15. INDERAL [Concomitant]
     Active Substance: PROPRANOLOL HYDROCHLORIDE
     Indication: Mitral valve prolapse
  16. FLEXERIL [Concomitant]
     Active Substance: CYCLOBENZAPRINE HYDROCHLORIDE
     Indication: Fibromyalgia
  17. ATARAX [Concomitant]
     Active Substance: HYDROXYZINE HYDROCHLORIDE
     Indication: Sjogren^s syndrome
  18. Omega [Concomitant]
     Indication: Nutritional supplementation
  19. DIETARY SUPPLEMENT [Concomitant]
     Active Substance: DIETARY SUPPLEMENT
     Indication: Blood cholesterol increased
  20. ZINC [Concomitant]
     Active Substance: ZINC
     Indication: Mineral supplementation

REACTIONS (7)
  - Fall [Recovered/Resolved]
  - Fibromyalgia [Recovering/Resolving]
  - Vomiting [Recovered/Resolved]
  - Hip fracture [Recovered/Resolved]
  - Pain in extremity [Recovering/Resolving]
  - Lower limb fracture [Recovered/Resolved]
  - Arthralgia [Recovering/Resolving]

NARRATIVE: CASE EVENT DATE: 20240501
